FAERS Safety Report 10062936 (Version 1)
Quarter: 2014Q2

REPORT INFORMATION
  Report Type: Spontaneous
  Country: BR (occurrence: BR)
  Receive Date: 20140407
  Receipt Date: 20140407
  Transmission Date: 20141212
  Serious: Yes (Other)
  Sender: FDA-Public Use
  Company Number: BR-PFIZER INC-2014095379

PATIENT
  Age: 61 Year
  Sex: Female

DRUGS (1)
  1. FRONTAL [Suspect]
     Dosage: 3 MG (2MG STRENGTH, ONE AND A HALF TABLET), DAILY
     Route: 048

REACTIONS (1)
  - Head injury [Unknown]
